APPROVED DRUG PRODUCT: CLOZAPINE
Active Ingredient: CLOZAPINE
Strength: 50MG
Dosage Form/Route: TABLET;ORAL
Application: A209480 | Product #002
Applicant: ZYDUS PHARMACEUTICALS USA INC
Approved: Dec 6, 2017 | RLD: No | RS: No | Type: DISCN